FAERS Safety Report 6860294-X (Version None)
Quarter: 2010Q3

REPORT INFORMATION
  Report Type: 
  Country: None (occurrence: None)
  Receive Date: 20100715
  Receipt Date: 20100702
  Transmission Date: 20110219
  Serious: Yes (Hospitalization)
  Sender: FDA-Public Use
  Company Number: 003396

PATIENT
  Sex: Female

DRUGS (2)
  1. CIMZIA [Suspect]
     Indication: CROHN'S DISEASE
     Dosage: (400 MG 1X/MONTH SUBCUTANEOUS), (400 MG 1X/2 WEEKS SUBCUTANEOUS)
     Route: 058
     Dates: start: 20090803
  2. CIMZIA [Suspect]

REACTIONS (5)
  - CONDITION AGGRAVATED [None]
  - CROHN'S DISEASE [None]
  - DECREASED APPETITE [None]
  - GASTROENTERITIS VIRAL [None]
  - HIATUS HERNIA [None]
